FAERS Safety Report 13272194 (Version 1)
Quarter: 2017Q1

REPORT INFORMATION
  Report Type: Spontaneous
  Country: US (occurrence: US)
  Receive Date: 20170224
  Receipt Date: 20170224
  Transmission Date: 20170428
  Serious: No
  Sender: FDA-Public Use
  Company Number: None

PATIENT
  Age: 78 Year
  Sex: Male

DRUGS (4)
  1. AFINITOR [Suspect]
     Active Substance: EVEROLIMUS
     Indication: NAUSEA
  2. AFINITOR [Suspect]
     Active Substance: EVEROLIMUS
     Indication: CARCINOID SYNDROME
  3. AFINITOR [Suspect]
     Active Substance: EVEROLIMUS
     Indication: CARCINOID TUMOUR
  4. AFINITOR [Suspect]
     Active Substance: EVEROLIMUS
     Indication: DIARRHOEA

REACTIONS (5)
  - Anaemia [None]
  - Neutropenia [None]
  - Diarrhoea [None]
  - Stomatitis [None]
  - Thrombocytopenia [None]

NARRATIVE: CASE EVENT DATE: 20170210
